FAERS Safety Report 8924444 (Version 1)
Quarter: 2012Q4

REPORT INFORMATION
  Report Type: 
  Country: JP (occurrence: JP)
  Receive Date: 20121126
  Receipt Date: 20121126
  Transmission Date: 20130627
  Serious: Yes (Death, Hospitalization, Other)
  Sender: FDA-Public Use
  Company Number: PHHY2012JP107722

PATIENT
  Age: 76 Year
  Sex: Male

DRUGS (7)
  1. VINCRISTINE [Suspect]
     Indication: DIFFUSE LARGE B-CELL LYMPHOMA
  2. PREDNISOLONE SANDOZ [Suspect]
     Indication: DIFFUSE LARGE B-CELL LYMPHOMA
  3. METHOTREXATE [Suspect]
     Indication: CENTRAL NERVOUS SYSTEM LESION
  4. RITUXIMAB [Suspect]
     Indication: DIFFUSE LARGE B-CELL LYMPHOMA
     Dosage: 375 mg/m2, UNK
     Route: 042
  5. PIRARUBICIN [Suspect]
     Indication: DIFFUSE LARGE B-CELL LYMPHOMA
  6. CYCLOPHOSPHAMIDE [Suspect]
     Indication: DIFFUSE LARGE B-CELL LYMPHOMA
  7. CLADRIBINE [Suspect]
     Indication: CENTRAL NERVOUS SYSTEM LESION
     Dosage: 0.1 mg/kg, UNK
     Route: 042

REACTIONS (5)
  - Bacterial sepsis [Fatal]
  - Pyrexia [Fatal]
  - Central nervous system lesion [Recovered/Resolved]
  - Myelodysplastic syndrome [Unknown]
  - Pancytopenia [Unknown]
